FAERS Safety Report 16237284 (Version 1)
Quarter: 2019Q2

REPORT INFORMATION
  Report Type: Spontaneous
  Country: US (occurrence: US)
  Receive Date: 20190320
  Receipt Date: 20190320
  Transmission Date: 20190711
  Serious: Yes (Hospitalization, Disabling, Other)
  Sender: FDA-Public Use
  Company Number: None

PATIENT
  Age: 20 Year
  Sex: Female
  Weight: 93.44 kg

DRUGS (1)
  1. DIFFERIN GEL [Suspect]
     Active Substance: ADAPALENE
     Indication: ACNE
     Dosage: ?          QUANTITY:PEA SIZE PORTION;?
     Route: 061
     Dates: start: 20180210, end: 20180214

REACTIONS (7)
  - Chemical burn of skin [None]
  - Chest pain [None]
  - Application site vesicles [None]
  - Syncope [None]
  - Heart rate increased [None]
  - Dyspnoea [None]
  - Rash [None]

NARRATIVE: CASE EVENT DATE: 20180210
